FAERS Safety Report 24394212 (Version 3)
Quarter: 2024Q4

REPORT INFORMATION
  Report Type: Spontaneous
  Country: US (occurrence: US)
  Receive Date: 20241004
  Receipt Date: 20241223
  Transmission Date: 20250115
  Serious: Yes (Other)
  Sender: ASTELLAS
  Company Number: US-ASTELLAS-2024-AER-009450

PATIENT
  Age: 79 Year
  Sex: Male
  Weight: 123.38 kg

DRUGS (8)
  1. XTANDI [Suspect]
     Active Substance: ENZALUTAMIDE
     Indication: Prostate cancer
     Dosage: 160 MG, ONCE DAILY, TAKE ONE CAPSULE BY MOUTH ONCE DAILY WITH OR WITHOUT FOOD
     Route: 048
     Dates: start: 20240814
  2. XTANDI [Suspect]
     Active Substance: ENZALUTAMIDE
     Dosage: TAKE 4 CAPSULES BY MOUTH ONCE DAILY WITH OR WITHOUT FOOD.
     Route: 048
     Dates: start: 20240904
  3. ELIGARD [Suspect]
     Active Substance: LEUPROLIDE ACETATE
     Indication: Product used for unknown indication
     Route: 065
     Dates: start: 2023
  4. ZOMETA [Suspect]
     Active Substance: ZOLEDRONIC ACID
     Indication: Product used for unknown indication
     Route: 065
     Dates: start: 20240904
  5. CASODEX [Concomitant]
     Active Substance: BICALUTAMIDE
     Indication: Product used for unknown indication
     Dosage: FOR 30 DAYS
     Route: 065
  6. LUPRON [Concomitant]
     Active Substance: LEUPROLIDE ACETATE
     Indication: Product used for unknown indication
     Dosage: PLAN TO FINISH 48 MONTHS.
     Route: 065
     Dates: start: 202301
  7. TALZENNA [Concomitant]
     Active Substance: TALAZOPARIB TOSYLATE
     Indication: Prostate cancer
     Dosage: TAKE ONE (1) CAPSULE MOUTH ONCE DAILY WITH OR WITHOUT FOOD.
     Route: 048
     Dates: start: 202409
  8. TALZENNA [Concomitant]
     Active Substance: TALAZOPARIB TOSYLATE
     Dosage: TAKE ONE (1) CAPSULE MOUTH ONCE DAILY WITH OR WITHOUT FOOD.
     Route: 048
     Dates: start: 20241112

REACTIONS (6)
  - Malignant neoplasm progression [Unknown]
  - Urinary retention [Unknown]
  - Disease recurrence [Unknown]
  - Fatigue [Unknown]
  - Somnolence [Unknown]
  - Anaemia [Unknown]

NARRATIVE: CASE EVENT DATE: 20240801
